FAERS Safety Report 8847019 (Version 1)
Quarter: 2012Q4

REPORT INFORMATION
  Report Type: Spontaneous
  Country: US (occurrence: None)
  Receive Date: 20121017
  Receipt Date: 20121017
  Transmission Date: 20130627
  Serious: Yes (Other)
  Sender: FDA-Public Use
  Company Number: None

PATIENT
  Age: 53 Year
  Sex: Male
  Weight: 106.6 kg

DRUGS (1)
  1. LISINOPRIL [Suspect]
     Indication: HYPERTENSION
     Dosage: 1 daily po
     Route: 048
     Dates: start: 20120815, end: 20121012

REACTIONS (4)
  - Chest discomfort [None]
  - Sensation of heaviness [None]
  - Heart rate irregular [None]
  - Extrasystoles [None]
